FAERS Safety Report 6249930-9 (Version None)
Quarter: 2009Q2

REPORT INFORMATION
  Report Type: 
  Country: None (occurrence: None)
  Receive Date: 20090625
  Receipt Date: 20090610
  Transmission Date: 20091009
  Serious: Yes (Hospitalization)
  Sender: FDA-Public Use
  Company Number: 2009AL001696

PATIENT
  Age: 73 Year
  Sex: Female

DRUGS (26)
  1. DIGOXIN [Suspect]
     Indication: CARDIAC DISORDER
     Dosage: 0.25MG, UNK, PO
     Route: 048
     Dates: start: 20070622
  2. METFORMIN HCL [Concomitant]
  3. GLYBURIDE [Concomitant]
  4. PARTOPRAZOLE [Concomitant]
  5. LEVOTHYROXINE SODIUM [Concomitant]
  6. ENALAPRIL [Concomitant]
  7. OS-CAL [Concomitant]
  8. NIFEDIPINE [Concomitant]
  9. METOPROLOL [Concomitant]
  10. CIPRO [Concomitant]
  11. ASPIRIN [Concomitant]
  12. LIPITOR [Concomitant]
  13. PREMARIN [Concomitant]
  14. UNITHROID [Concomitant]
  15. PEPCID [Concomitant]
  16. ALTACE [Concomitant]
  17. PREVACID [Concomitant]
  18. TOPROL-XL [Concomitant]
  19. NEXIUM [Concomitant]
  20. CENTRUM [Concomitant]
  21. PROTONIX [Concomitant]
  22. LOPRESSOR [Concomitant]
  23. MAGNESIUM SULFATE [Concomitant]
  24. SYNTHROID [Concomitant]
  25. PROCARDIA [Concomitant]
  26. VASOTEC [Concomitant]

REACTIONS (18)
  - ANAEMIA [None]
  - ANHEDONIA [None]
  - ANXIETY [None]
  - ASTHENIA [None]
  - DEHYDRATION [None]
  - DIARRHOEA [None]
  - ECONOMIC PROBLEM [None]
  - GASTRITIS [None]
  - GASTRODUODENITIS [None]
  - HYPERTENSION [None]
  - HYPOMAGNESAEMIA [None]
  - HYPOPHAGIA [None]
  - NAUSEA [None]
  - PAIN [None]
  - PALPITATIONS [None]
  - THERAPEUTIC AGENT TOXICITY [None]
  - URINARY TRACT INFECTION [None]
  - VITAMIN B12 DEFICIENCY [None]
